FAERS Safety Report 13293142 (Version 2)
Quarter: 2017Q2

REPORT INFORMATION
  Report Type: Spontaneous
  Country: JP (occurrence: JP)
  Receive Date: 20170303
  Receipt Date: 20170419
  Transmission Date: 20170830
  Serious: Yes (Hospitalization)
  Sender: FDA-Public Use
  Company Number: JP-SHIONOGI, INC-2015000840

PATIENT
  Age: 68 Year
  Sex: Female
  Weight: 49.1 kg

DRUGS (3)
  1. FINIBAX [Suspect]
     Active Substance: DORIPENEM MONOHYDRATE
     Indication: DISSEMINATED INTRAVASCULAR COAGULATION
     Dosage: 0.5 G, BID
     Route: 041
     Dates: start: 20150710, end: 20150711
  2. FINIBAX [Suspect]
     Active Substance: DORIPENEM MONOHYDRATE
     Indication: PERITONITIS
  3. CEFMETAZON [Suspect]
     Active Substance: CEFMETAZOLE SODIUM
     Indication: PERITONITIS
     Dosage: 1 G, BID
     Route: 041
     Dates: start: 20150708, end: 20150709

REACTIONS (1)
  - Liver disorder [Recovering/Resolving]

NARRATIVE: CASE EVENT DATE: 20150712
